FAERS Safety Report 11225207 (Version 1)
Quarter: 2015Q2

REPORT INFORMATION
  Report Type: Spontaneous
  Country: DK (occurrence: DK)
  Receive Date: 20150629
  Receipt Date: 20150629
  Transmission Date: 20150821
  Serious: Yes (Hospitalization)
  Sender: FDA-Public Use
  Company Number: PHHY2015DK072824

PATIENT
  Age: 86 Year
  Sex: Female
  Weight: 60 kg

DRUGS (6)
  1. IBUMETIN [Concomitant]
     Active Substance: IBUPROFEN
     Indication: ARTHRALGIA
     Route: 065
     Dates: end: 20150609
  2. SIMVASTATIN. [Concomitant]
     Active Substance: SIMVASTATIN
     Indication: HYPERCHOLESTEROLAEMIA
     Route: 065
     Dates: end: 20150611
  3. TRADOLAN [Concomitant]
     Active Substance: TRAMADOL
     Indication: PAIN
     Route: 065
  4. CORODIL COMP [Suspect]
     Active Substance: ENALAPRIL MALEATE\HYDROCHLOROTHIAZIDE
     Indication: HYPERTENSION
     Dosage: STRENGTH: 20 MG + 12,5 MG
     Route: 048
     Dates: start: 20150526, end: 20150611
  5. PINEX                                   /DEN/ [Concomitant]
     Indication: PAIN
     Route: 065
  6. CENTYL MED KALIUMKLORID [Suspect]
     Active Substance: BENDROFLUMETHIAZIDE\POTASSIUM CHLORIDE
     Indication: HYPERTENSION
     Dosage: DOSAGE: 1 TABLET AS NEEDED, MAX 3 TABLETS DAILY, STRENGTH: 2,5 + 573 MG.
     Route: 048
     Dates: end: 20150611

REACTIONS (3)
  - Fall [Unknown]
  - Asthenia [Unknown]
  - Hyponatraemia [Not Recovered/Not Resolved]

NARRATIVE: CASE EVENT DATE: 20150528
